FAERS Safety Report 8962835 (Version 4)
Quarter: 2013Q4

REPORT INFORMATION
  Report Type: Spontaneous
  Country: US (occurrence: US)
  Receive Date: 20121214
  Receipt Date: 20131212
  Transmission Date: 20140711
  Serious: Yes (Other)
  Sender: FDA-Public Use
  Company Number: US-PFIZER INC-2012312713

PATIENT
  Age: 61 Year
  Sex: Male
  Weight: 95.24 kg

DRUGS (6)
  1. VIAGRA [Suspect]
     Indication: ERECTILE DYSFUNCTION
     Dosage: 50 MG, 2X/WEEK
  2. VIAGRA [Suspect]
     Indication: SEXUAL DYSFUNCTION
     Dosage: 100 MG, AS NEEDED
     Route: 048
  3. VIAGRA [Suspect]
     Dosage: 100 MG, UNK
  4. VIAGRA [Suspect]
     Dosage: 200 MG (2 100 MG TABLETS), UNK
  5. FLOMAX [Concomitant]
     Indication: BENIGN PROSTATIC HYPERPLASIA
     Dosage: UNK
  6. CELEBREX [Concomitant]
     Indication: ARTHRITIS
     Dosage: 200 MG, DAILY

REACTIONS (5)
  - Arthritis infective [Recovered/Resolved]
  - Infection [Recovered/Resolved]
  - Expired drug administered [Unknown]
  - Drug ineffective [Unknown]
  - Extra dose administered [Unknown]
